FAERS Safety Report 9011982 (Version 2)
Quarter: 2013Q1

REPORT INFORMATION
  Report Type: Spontaneous
  Country: US (occurrence: US)
  Receive Date: 20130114
  Receipt Date: 20130206
  Transmission Date: 20140127
  Serious: Yes (Hospitalization, Other)
  Sender: FDA-Public Use
  Company Number: US-ELI_LILLY_AND_COMPANY-US201212008283

PATIENT
  Sex: Female
  Weight: 44.9 kg

DRUGS (11)
  1. FORTEO [Suspect]
     Indication: OSTEOPOROSIS
     Dosage: 20 UG, QD
     Route: 058
     Dates: start: 20121212
  2. BENAZEPRIL [Concomitant]
     Dosage: 10 MG, QD
  3. AMLODIPINE [Concomitant]
     Dosage: 5 MG, QD
  4. LEVOTHYROXINE [Concomitant]
     Dosage: 0.025 MG, QD
  5. METOPROLOL [Concomitant]
     Dosage: 50 MG, BID
  6. NAMENDA [Concomitant]
     Dosage: 5 MG, BID
  7. MEGESTROL [Concomitant]
     Dosage: 40 MG, BID
  8. VITAMIN D3 [Concomitant]
     Dosage: UNK, BID
  9. BUFFERED ASPIRIN [Concomitant]
     Dosage: 300 MG, QD
  10. CALCIUM [Concomitant]
     Dosage: UNK, QD
     Route: 048
  11. NAPROXEN SODIUM [Concomitant]
     Dosage: 220 MG, BID

REACTIONS (8)
  - Dehydration [Unknown]
  - Renal function test abnormal [Unknown]
  - Anaemia [Unknown]
  - Dyspnoea [Recovering/Resolving]
  - Fatigue [Unknown]
  - Wheezing [Unknown]
  - Asthenia [Recovering/Resolving]
  - Cardiomyopathy [Unknown]
